FAERS Safety Report 9555156 (Version 1)
Quarter: 2013Q3

REPORT INFORMATION
  Report Type: Spontaneous
  Country: US (occurrence: None)
  Receive Date: 20130925
  Receipt Date: 20130925
  Transmission Date: 20140515
  Serious: Yes (Life-Threatening)
  Sender: FDA-Public Use
  Company Number: None

PATIENT
  Age: 68 Year
  Sex: Female
  Weight: 68.04 kg

DRUGS (1)
  1. VERSED [Suspect]
     Indication: CATARACT OPERATION

REACTIONS (6)
  - Memory impairment [None]
  - Obsessive thoughts [None]
  - Depression [None]
  - Anxiety [None]
  - Suicidal ideation [None]
  - Psychotic disorder [None]
